FAERS Safety Report 9997850 (Version 1)
Quarter: 2014Q1

REPORT INFORMATION
  Report Type: Spontaneous
  Country: US (occurrence: None)
  Receive Date: 20140224
  Receipt Date: 20140224
  Transmission Date: 20141002
  Serious: Yes (Hospitalization)
  Sender: FDA-Public Use
  Company Number: 2013070156

PATIENT
  Age: 14 Year
  Sex: Male

DRUGS (2)
  1. MESALAZINE [Suspect]
     Indication: COLITIS ULCERATIVE
     Dosage: (1.5 GM, DAILY)
  2. MESALAZINE [Suspect]
     Dosage: (1.5 GM, DAILY)

REACTIONS (1)
  - Tubulointerstitial nephritis [None]
